FAERS Safety Report 23384566 (Version 3)
Quarter: 2024Q2

REPORT INFORMATION
  Report Type: Report from Study
  Country: CA (occurrence: CA)
  Receive Date: 20240109
  Receipt Date: 20240402
  Transmission Date: 20240716
  Serious: Yes (Other)
  Sender: FDA-Public Use
  Company Number: CA-HLS-202303001

PATIENT
  Age: 52 Year
  Sex: Female

DRUGS (1)
  1. CLOZARIL [Suspect]
     Active Substance: CLOZAPINE
     Indication: Product used for unknown indication
     Dosage: 100 MG ORAL QHS
     Route: 048
     Dates: start: 20231206

REACTIONS (5)
  - Blood pressure decreased [Unknown]
  - C-reactive protein increased [Unknown]
  - Eosinophil count increased [Not Recovered/Not Resolved]
  - Lymphocyte count decreased [Unknown]
  - Tachycardia [Recovering/Resolving]

NARRATIVE: CASE EVENT DATE: 20231221
